FAERS Safety Report 16013441 (Version 2)
Quarter: 2019Q2

REPORT INFORMATION
  Report Type: Report from Study
  Country: CA (occurrence: CA)
  Receive Date: 20190227
  Receipt Date: 20190401
  Transmission Date: 20190711
  Serious: Yes (Other)
  Sender: FDA-Public Use
  Company Number: CA-BRISTOL-MYERS SQUIBB COMPANY-BMS-2019-011062

PATIENT
  Age: 60 Year
  Sex: Female

DRUGS (1)
  1. NIVOLUMAB [Suspect]
     Active Substance: NIVOLUMAB
     Indication: MALIGNANT MELANOMA
     Dosage: 440 MILLIGRAM, Q4WK
     Route: 042
     Dates: start: 20181221

REACTIONS (15)
  - Fatigue [Unknown]
  - Gingival pain [Recovered/Resolved]
  - Pain [Recovering/Resolving]
  - Rash generalised [Recovered/Resolved]
  - Hyperaesthesia teeth [Recovered/Resolved]
  - Tooth abscess [Recovering/Resolving]
  - Headache [Unknown]
  - Wound complication [Unknown]
  - Vision blurred [Unknown]
  - Migraine [Recovering/Resolving]
  - Nausea [Unknown]
  - Abdominal pain [Unknown]
  - Disorientation [Unknown]
  - Chromaturia [Unknown]
  - Vertigo [Unknown]

NARRATIVE: CASE EVENT DATE: 201901
